FAERS Safety Report 7115557-X (Version None)
Quarter: 2010Q4

REPORT INFORMATION
  Report Type: 
  Country: None (occurrence: None)
  Receive Date: 20101122
  Receipt Date: 20101112
  Transmission Date: 20110411
  Serious: Yes (Death, Hospitalization)
  Sender: FDA-Public Use
  Company Number: US-AMGEN INC.-QUU445258

PATIENT

DRUGS (2)
  1. NPLATE [Suspect]
     Indication: IDIOPATHIC THROMBOCYTOPENIC PURPURA
     Dosage: UNK UNK, UNK
     Dates: start: 20091117, end: 20100914
  2. CORTICOSTEROIDS [Concomitant]
     Dosage: UNK
     Dates: start: 20091119

REACTIONS (2)
  - DEATH [None]
  - HOSPITALISATION [None]
